FAERS Safety Report 10045806 (Version 1)
Quarter: 2014Q1

REPORT INFORMATION
  Report Type: Spontaneous
  Country: US (occurrence: US)
  Receive Date: 20140328
  Receipt Date: 20140328
  Transmission Date: 20141002
  Serious: No
  Sender: FDA-Public Use
  Company Number: US-009507513-1403USA004878

PATIENT
  Age: 53 Year
  Sex: Female

DRUGS (5)
  1. REBETOL [Suspect]
     Indication: CHRONIC HEPATITIS C
     Dosage: UNK
     Route: 048
  2. REBETOL [Suspect]
     Indication: HEPATIC CIRRHOSIS
  3. PEGINTRON [Suspect]
     Dosage: UNK
  4. TELAPREVIR [Suspect]
     Indication: CHRONIC HEPATITIS C
  5. TELAPREVIR [Suspect]
     Indication: HEPATIC CIRRHOSIS

REACTIONS (2)
  - Drug therapy [Recovered/Resolved]
  - Anaemia [Recovered/Resolved]
